FAERS Safety Report 7300022-7 (Version None)
Quarter: 2011Q1

REPORT INFORMATION
  Report Type: 
  Country: None (occurrence: None)
  Receive Date: 20110217
  Receipt Date: 20110209
  Transmission Date: 20110831
  Serious: Yes (Hospitalization)
  Sender: FDA-Public Use
  Company Number: JP-ABBOTT-10P-087-0673746-00

PATIENT
  Age: 55 Year
  Sex: Male

DRUGS (9)
  1. ABEMIDE [Concomitant]
     Indication: DIABETES MELLITUS
     Route: 048
     Dates: start: 20080620, end: 20100531
  2. MELBIN [Concomitant]
     Indication: DIABETES MELLITUS
     Route: 048
     Dates: start: 20041112
  3. ADENOCK [Concomitant]
     Indication: GOUT
  4. DIOVAN [Concomitant]
     Indication: HYPERTENSION
     Route: 048
     Dates: start: 20051230
  5. ADENOCK [Concomitant]
     Indication: BLOOD URIC ACID INCREASED
     Route: 048
     Dates: start: 20041114
  6. LIPIDIL [Suspect]
     Indication: DYSLIPIDAEMIA
     Route: 048
     Dates: start: 20080620
  7. ACTOS [Suspect]
     Indication: DIABETES MELLITUS
     Route: 048
     Dates: start: 20091030
  8. ABEMIDE [Concomitant]
     Route: 048
     Dates: start: 20100601
  9. CORINAEL [Concomitant]
     Indication: HYPERTENSION
     Route: 048
     Dates: start: 20070119

REACTIONS (2)
  - INSULIN RESISTANCE [None]
  - HYPOCHOLESTEROLAEMIA [None]
